FAERS Safety Report 8189875-0 (Version None)
Quarter: 2012Q1

REPORT INFORMATION
  Report Type: 
  Country: None (occurrence: None)
  Receive Date: 20120307
  Receipt Date: 20120228
  Transmission Date: 20120608
  Serious: Yes (Hospitalization)
  Sender: FDA-Public Use
  Company Number: US-BAYER-2011-099499

PATIENT
  Sex: Female
  Weight: 54 kg

DRUGS (2)
  1. YAZ [Suspect]
     Dosage: UNK
     Dates: start: 20090101
  2. YASMIN [Suspect]
     Dosage: UNK
     Dates: start: 20090101, end: 20090101

REACTIONS (5)
  - THROMBOSIS [None]
  - EMOTIONAL DISTRESS [None]
  - INJURY [None]
  - ANXIETY [None]
  - PAIN [None]
